FAERS Safety Report 6881753-X (Version None)
Quarter: 2010Q3

REPORT INFORMATION
  Report Type: 
  Country: None (occurrence: None)
  Receive Date: 20100729
  Receipt Date: 20100722
  Transmission Date: 20110219
  Serious: Yes (Other)
  Sender: FDA-Public Use
  Company Number: US-RANBAXY-2010US-36116

PATIENT

DRUGS (5)
  1. VERAPAMIL [Suspect]
     Indication: HEART RATE IRREGULAR
     Dosage: 240 MG, UNK
     Route: 065
     Dates: start: 19860101
  2. VERAPAMIL [Suspect]
     Indication: ATRIAL TACHYCARDIA
  3. VERAPAMIL [Suspect]
     Indication: HYPERTENSION
  4. ZOLOFT [Concomitant]
     Indication: DEPRESSION
     Route: 065
  5. NEURONTIN [Concomitant]
     Indication: PRODUCT USED FOR UNKNOWN INDICATION
     Route: 065

REACTIONS (1)
  - CROHN'S DISEASE [None]
